APPROVED DRUG PRODUCT: CLOBETASOL PROPIONATE
Active Ingredient: CLOBETASOL PROPIONATE
Strength: 0.05%
Dosage Form/Route: AEROSOL, FOAM;TOPICAL
Application: A208563 | Product #001
Applicant: TARO PHARMACEUTICAL INDUSTRIES LTD
Approved: Mar 14, 2024 | RLD: No | RS: No | Type: DISCN